FAERS Safety Report 5552405-3 (Version None)
Quarter: 2007Q4

REPORT INFORMATION
  Report Type: 
  Country: None (occurrence: None)
  Receive Date: 20071210
  Receipt Date: 20071129
  Transmission Date: 20080405
  Serious: Yes (Other)
  Sender: FDA-Public Use
  Company Number: 2007-03718

PATIENT
  Age: 41 Year
  Sex: Male
  Weight: 79 kg

DRUGS (1)
  1. VELCADE [Suspect]
     Indication: MULTIPLE MYELOMA
     Dosage: 2.50 MG/M2, INTRAVENOUS
     Route: 042
     Dates: start: 20070516, end: 20070830

REACTIONS (3)
  - CRANIAL NERVE PALSIES MULTIPLE [None]
  - MALIGNANT NEOPLASM PROGRESSION [None]
  - MULTIPLE MYELOMA [None]
